FAERS Safety Report 21409430 (Version 2)
Quarter: 2022Q4

REPORT INFORMATION
  Report Type: Spontaneous
  Country: DE (occurrence: DE)
  Receive Date: 20221004
  Receipt Date: 20221007
  Transmission Date: 20230112
  Serious: Yes (Hospitalization)
  Sender: FDA-Public Use
  Company Number: DE-ANIPHARMA-2022-DE-000170

PATIENT
  Age: 80 Year
  Sex: Female
  Weight: 80 kg

DRUGS (9)
  1. CANDESARTAN CILEXETIL [Suspect]
     Active Substance: CANDESARTAN CILEXETIL
     Indication: Product used for unknown indication
     Dosage: 8 MILLIGRAM /  8 MG 0-0-0.5-0, TABLETS
     Route: 048
  2. PREDNISOLONE [Suspect]
     Active Substance: PREDNISOLONE
     Dosage: 5 MILLIGRAMS, QD/ 5MG, 1-0-0-0
     Route: 048
  3. TORSEMIDE [Suspect]
     Active Substance: TORSEMIDE
     Dosage: 10 MILLIGRAM /  10MG, 2-2-0-0
     Route: 048
  4. ASPIRIN [Concomitant]
     Active Substance: ASPIRIN
     Dosage: 100 MG DAILY/100MG, 1-0-0-0
     Route: 048
  5. CALCIUM CARBONATE\CALCIUM LACTATE GLUCONATE [Concomitant]
     Active Substance: CALCIUM CARBONATE\CALCIUM LACTATE GLUCONATE
     Dosage: 3 MG00/2945.15 0-1-0-0,
     Route: 048
  6. METAMIZOL [Concomitant]
     Active Substance: METAMIZOLE SODIUM
     Dosage: 500 MG QID/500 MG,1-1-1-1
     Route: 048
  7. BUPRENORPHINE [Concomitant]
     Active Substance: BUPRENORPHINE
     Dosage: .052 MG Q1H/0.0525 MG/H, ACCORDING TO SCHEME
     Route: 050
  8. MAGNESIUM ASPARTATE DIHYDRATE MAGNESIUM CITRATE [Concomitant]
     Dosage: 243.05 MG QD /243.05 MG, 0-0-1-0
     Route: 048
  9. METOPROLOL [Suspect]
     Active Substance: METOPROLOL
     Dosage: 47.5 MILLIGRAM/47.5 MG, 0.5-0-0-0
     Route: 048

REACTIONS (3)
  - Cholecystitis acute [Recovering/Resolving]
  - Acute kidney injury [Recovering/Resolving]
  - Abdominal pain upper [Recovering/Resolving]

NARRATIVE: CASE EVENT DATE: 20210520
